FAERS Safety Report 5835495-X (Version None)
Quarter: 2008Q3

REPORT INFORMATION
  Report Type: 
  Country: None (occurrence: None)
  Receive Date: 20080806
  Receipt Date: 20080725
  Transmission Date: 20090109
  Serious: Yes (Other)
  Sender: FDA-Public Use
  Company Number: PL-ROCHE-578790

PATIENT
  Age: 22 Year
  Sex: Female

DRUGS (2)
  1. PEGASYS [Suspect]
     Dosage: PEG INTERFERON ALFA 2A 180 UG/WEEK PEG INTERFERON ALFA 2B 1.5 UG/WEEK
     Route: 065
  2. RIBAVIRIN [Suspect]
     Route: 048

REACTIONS (1)
  - EPILEPSY [None]
